FAERS Safety Report 5469271-7 (Version None)
Quarter: 2007Q3

REPORT INFORMATION
  Report Type: 
  Country: None (occurrence: None)
  Receive Date: 20070926
  Receipt Date: 20070926
  Transmission Date: 20080115
  Serious: Yes (Other)
  Sender: FDA-Public Use
  Company Number: None

PATIENT
  Sex: Female
  Weight: 130.4 kg

DRUGS (1)
  1. ODANSETRON [Suspect]

REACTIONS (7)
  - AMNESIA [None]
  - ANXIETY [None]
  - LETHARGY [None]
  - NAUSEA [None]
  - OXYGEN SATURATION DECREASED [None]
  - RASH [None]
  - SOMNOLENCE [None]
